FAERS Safety Report 5861639-X (Version None)
Quarter: 2008Q3

REPORT INFORMATION
  Report Type: 
  Country: None (occurrence: None)
  Receive Date: 20080827
  Receipt Date: 20080605
  Transmission Date: 20090109
  Serious: No
  Sender: FDA-Public Use
  Company Number: US-ABBOTT-08P-163-0455288-00

PATIENT
  Sex: Female
  Weight: 77.18 kg

DRUGS (3)
  1. COATED PDS [Suspect]
     Indication: LOW DENSITY LIPOPROTEIN DECREASED
     Dosage: ONE TAB IN AM AND ONE TAB IN PM
     Route: 048
     Dates: start: 20080529
  2. OLMESARTAN MEDOXOMIL [Concomitant]
     Indication: BLOOD CHOLESTEROL INCREASED
     Dosage: 21/1250 MG (TOTAL DAILY DOSE) 21/1250 MG (UNIT DOSE)
     Route: 048
     Dates: start: 20060101
  3. IBUPROFEN [Concomitant]
     Indication: PAIN
     Route: 048

REACTIONS (4)
  - BLOOD PRESSURE DECREASED [None]
  - DIZZINESS [None]
  - FEELING HOT [None]
  - FLUSHING [None]
